FAERS Safety Report 5135548-8 (Version None)
Quarter: 2006Q4

REPORT INFORMATION
  Report Type: 
  Country: None (occurrence: None)
  Receive Date: 20061026
  Receipt Date: 20060508
  Transmission Date: 20070319
  Serious: Yes (Other)
  Sender: FDA-Public Use
  Company Number: US-ELI_LILLY_AND_COMPANY-US200605001714

PATIENT
  Age: 78 Year
  Sex: Male

DRUGS (3)
  1. FORTEO [Suspect]
     Indication: OSTEOPOROSIS
     Dosage: UNK, UNK
     Dates: start: 20060406, end: 20060101
  2. LIDODERM [Concomitant]
  3. NEXIUM [Concomitant]
     Dosage: 40 MG, DAILY (1/D)
     Dates: start: 20060405

REACTIONS (9)
  - COLD SWEAT [None]
  - DIARRHOEA [None]
  - HEAT EXHAUSTION [None]
  - LOSS OF CONSCIOUSNESS [None]
  - MALAISE [None]
  - MEDICAL DEVICE COMPLICATION [None]
  - NAUSEA [None]
  - PHARMACEUTICAL PRODUCT COMPLAINT [None]
  - VOMITING [None]
